FAERS Safety Report 19058001 (Version 1)
Quarter: 2021Q1

REPORT INFORMATION
  Report Type: Spontaneous
  Country: US (occurrence: US)
  Receive Date: 20210325
  Receipt Date: 20210325
  Transmission Date: 20210420
  Serious: No
  Sender: FDA-Public Use
  Company Number: US-BAYER-2021-106489

PATIENT
  Age: 67 Year
  Sex: Female
  Weight: 90.72 kg

DRUGS (4)
  1. CLARITIN [Suspect]
     Active Substance: LORATADINE
     Indication: ERYTHEMA
  2. CLARITIN [Suspect]
     Active Substance: LORATADINE
     Indication: SWELLING FACE
     Dosage: UNK
     Dates: start: 202103
  3. LOSARTAN. [Concomitant]
     Active Substance: LOSARTAN
     Indication: HYPERTENSION
  4. CLARITIN [Suspect]
     Active Substance: LORATADINE
     Indication: RASH PRURITIC

REACTIONS (1)
  - Drug ineffective for unapproved indication [None]

NARRATIVE: CASE EVENT DATE: 202103
